FAERS Safety Report 8412693-2 (Version None)
Quarter: 2012Q2

REPORT INFORMATION
  Report Type: 
  Country: None (occurrence: None)
  Receive Date: 20120605
  Receipt Date: 20120522
  Transmission Date: 20120825
  Serious: No
  Sender: FDA-Public Use
  Company Number: US-AMGEN-USASP2012030534

PATIENT
  Age: 51 Year
  Sex: Female
  Weight: 78.47 kg

DRUGS (4)
  1. NEUPOGEN [Suspect]
     Dosage: UNK
  2. ENBREL [Suspect]
     Indication: PSORIASIS
  3. ENBREL [Suspect]
     Indication: PSORIATIC ARTHROPATHY
     Dosage: 50 MG, QWK
     Route: 058
     Dates: start: 20111201
  4. PREDNISONE [Concomitant]
     Indication: PSORIATIC ARTHROPATHY
     Dosage: 5 MG, QD
     Route: 048

REACTIONS (2)
  - DRUG HYPERSENSITIVITY [None]
  - BRONCHITIS [None]
